FAERS Safety Report 18128174 (Version 5)
Quarter: 2020Q4

REPORT INFORMATION
  Report Type: Spontaneous
  Country: DE (occurrence: DE)
  Receive Date: 20200810
  Receipt Date: 20201014
  Transmission Date: 20210113
  Serious: Yes (Other)
  Sender: FDA-Public Use
  Company Number: DE-BEH-2020121038

PATIENT
  Sex: Female
  Weight: 62 kg

DRUGS (9)
  1. HIZENTRA [Suspect]
     Active Substance: HUMAN IMMUNOGLOBULIN G
     Indication: HUMORAL IMMUNE DEFECT
     Dosage: 1 X 20 ML, QW; INFUSION TIME 3.5 HOURS
     Route: 058
     Dates: start: 201611
  2. HIZENTRA [Suspect]
     Active Substance: HUMAN IMMUNOGLOBULIN G
     Dosage: 10X 10ML
     Route: 058
     Dates: start: 202005
  3. HIZENTRA [Suspect]
     Active Substance: HUMAN IMMUNOGLOBULIN G
     Dosage: 10X 10ML
     Route: 058
     Dates: start: 202007
  4. HIZENTRA [Suspect]
     Active Substance: HUMAN IMMUNOGLOBULIN G
     Dosage: 10X 10ML
     Route: 058
     Dates: start: 202003
  5. LONOLOX [Concomitant]
     Active Substance: MINOXIDIL
  6. ARANESP [Concomitant]
     Active Substance: DARBEPOETIN ALFA
  7. MIMPARA [Concomitant]
     Active Substance: CINACALCET HYDROCHLORIDE
  8. HIZENTRA [Suspect]
     Active Substance: HUMAN IMMUNOGLOBULIN G
     Dosage: 10X 10ML
     Route: 058
     Dates: start: 202002
  9. HIZENTRA [Suspect]
     Active Substance: HUMAN IMMUNOGLOBULIN G
     Dosage: 10X 10ML
     Route: 058
     Dates: start: 202008

REACTIONS (1)
  - Scleritis [Recovered/Resolved]

NARRATIVE: CASE EVENT DATE: 202005
